FAERS Safety Report 17689219 (Version 1)
Quarter: 2020Q2

REPORT INFORMATION
  Report Type: Spontaneous
  Country: US (occurrence: US)
  Receive Date: 20200421
  Receipt Date: 20200421
  Transmission Date: 20200714
  Serious: No
  Sender: FDA-Public Use
  Company Number: US-ASTRAZENECA-2020SE50075

PATIENT
  Age: 60 Year
  Sex: Male
  Weight: 90.3 kg

DRUGS (4)
  1. BENECAR [Concomitant]
     Indication: HYPERTENSION
  2. METFORMIN [Concomitant]
     Active Substance: METFORMIN HYDROCHLORIDE
     Indication: TYPE 2 DIABETES MELLITUS
  3. BYDUREON [Suspect]
     Active Substance: EXENATIDE
     Indication: TYPE 2 DIABETES MELLITUS
     Route: 058
     Dates: start: 2016
  4. LIPITOR [Concomitant]
     Active Substance: ATORVASTATIN CALCIUM
     Indication: HYPERTENSION
     Dosage: AT NIGHT

REACTIONS (8)
  - Pain [Not Recovered/Not Resolved]
  - Glycosylated haemoglobin increased [Unknown]
  - Nausea [Not Recovered/Not Resolved]
  - Injection site mass [Recovered/Resolved]
  - Weight decreased [Unknown]
  - Incorrect route of product administration [Unknown]
  - Sluggishness [Not Recovered/Not Resolved]
  - Malaise [Not Recovered/Not Resolved]

NARRATIVE: CASE EVENT DATE: 2018
